FAERS Safety Report 6218763-1 (Version None)
Quarter: 2009Q2

REPORT INFORMATION
  Report Type: 
  Country: None (occurrence: None)
  Receive Date: 20090608
  Receipt Date: 20090527
  Transmission Date: 20091009
  Serious: Yes (Other)
  Sender: FDA-Public Use
  Company Number: SG-PFIZER INC-2009178178

PATIENT

DRUGS (1)
  1. ZELDOX [Suspect]
     Dates: start: 20050101

REACTIONS (1)
  - BLOOD THYROID STIMULATING HORMONE DECREASED [None]
